FAERS Safety Report 7747659-9 (Version None)
Quarter: 2011Q3

REPORT INFORMATION
  Report Type: 
  Country: None (occurrence: None)
  Receive Date: 20110913
  Receipt Date: 20110908
  Transmission Date: 20111222
  Serious: Yes (Other)
  Sender: FDA-Public Use
  Company Number: US-PFIZER INC-2011211447

PATIENT
  Sex: Female

DRUGS (1)
  1. LYRICA [Suspect]
     Dosage: UNK

REACTIONS (10)
  - DYSURIA [None]
  - BURNING SENSATION [None]
  - TENSION HEADACHE [None]
  - ERYTHEMA [None]
  - INSOMNIA [None]
  - NAUSEA [None]
  - DYSPEPSIA [None]
  - NECK PAIN [None]
  - PAIN [None]
  - VISUAL IMPAIRMENT [None]
